FAERS Safety Report 12313393 (Version 1)
Quarter: 2016Q2

REPORT INFORMATION
  Report Type: Spontaneous
  Country: JP (occurrence: JP)
  Receive Date: 20160428
  Receipt Date: 20160428
  Transmission Date: 20160815
  Serious: Yes (Other)
  Sender: FDA-Public Use
  Company Number: JP-ROCHE-1738112

PATIENT
  Age: 68 Year
  Sex: Male

DRUGS (2)
  1. ELPLAT [Suspect]
     Active Substance: OXALIPLATIN
     Indication: COLON CANCER
     Dosage: DOSAGE IS UNCERTAIN.
     Route: 041
     Dates: start: 20150925
  2. XELODA [Suspect]
     Active Substance: CAPECITABINE
     Indication: COLON CANCER
     Dosage: MOST RECENT DOSE ON 10/FEB/2016
     Route: 048
     Dates: start: 20150925

REACTIONS (6)
  - Diarrhoea [Recovering/Resolving]
  - Thrombocytopenia [Recovered/Resolved]
  - Decreased appetite [Recovering/Resolving]
  - Mucous membrane disorder [Recovering/Resolving]
  - Eyelid oedema [Recovering/Resolving]
  - Stomatitis [Recovering/Resolving]

NARRATIVE: CASE EVENT DATE: 20151006
